FAERS Safety Report 10174815 (Version 1)
Quarter: 2014Q2

REPORT INFORMATION
  Report Type: Spontaneous
  Country: US (occurrence: None)
  Receive Date: 20140416
  Receipt Date: 20140416
  Transmission Date: 20141212
  Serious: Yes (Hospitalization)
  Sender: FDA-Public Use
  Company Number: 163-POMAL-13123542

PATIENT
  Age: 79 Year
  Sex: Male

DRUGS (18)
  1. POMALYST [Suspect]
     Indication: PLASMA CELL MYELOMA
     Route: 048
     Dates: start: 20130803
  2. ASPIRIN (ACETYLSALICYLIC ACID) [Concomitant]
  3. LEVOTHYROXINE (LEVOTHYROXINE) [Concomitant]
  4. MIRALAX (MACROGOL) [Concomitant]
  5. MORPHINE (MORPHINE) [Concomitant]
  6. MULTIVITAMINS(MULTIVITAMINS) [Concomitant]
  7. OCUVITE(OCUVITE) [Concomitant]
  8. VELCADE(BORTEZOMIB) [Concomitant]
  9. CYMBALTA [Concomitant]
  10. PROTONIX [Concomitant]
  11. DEXAMETHASONE(DEXAMETHASONE) [Concomitant]
  12. FUROSEMIDE(FUROSEMIDE) [Concomitant]
  13. LYRICA(PREGABALIN) [Concomitant]
  14. ZOMETA(ZOLEDRONIC ACID) [Concomitant]
  15. LISINOPRIL(LISINOPRIL) [Concomitant]
  16. SIMVASTATIN(SIMVASTATIN) [Concomitant]
  17. METOPROLOL TARTRATE(METOPROLOL TARTRATE) [Concomitant]
  18. ALLOPURINOL(ALLOPURINOL) [Concomitant]

REACTIONS (2)
  - Pain [None]
  - Dyspnoea [None]
